FAERS Safety Report 25210406 (Version 2)
Quarter: 2025Q2

REPORT INFORMATION
  Report Type: Spontaneous
  Country: US (occurrence: US)
  Receive Date: 20250417
  Receipt Date: 20250519
  Transmission Date: 20250717
  Serious: Yes (Other)
  Sender: CENTRAL ADMIXTURE PHARMACY SERVICES, INC.
  Company Number: US-Central Admixture Pharmacy Services, Inc.-2175102

PATIENT
  Age: 70 Year

DRUGS (1)
  1. DEL NIDO FORMULA (ISOLYTE S, PH 7.4) [Suspect]
     Active Substance: LIDOCAINE HYDROCHLORIDE\MAGNESIUM CHLORIDE\MAGNESIUM SULFATE\MANNITOL\POTASSIUM CHLORIDE\POTASSIUM P
     Dates: start: 20250317, end: 20250317

REACTIONS (1)
  - Drug ineffective [Recovered/Resolved]

NARRATIVE: CASE EVENT DATE: 20250317
